FAERS Safety Report 7000105-5 (Version None)
Quarter: 2010Q3

REPORT INFORMATION
  Report Type: 
  Country: None (occurrence: None)
  Receive Date: 20100920
  Receipt Date: 20100311
  Transmission Date: 20110219
  Serious: Yes (Hospitalization)
  Sender: FDA-Public Use
  Company Number: US-ASTRAZENECA-2009UW21079

PATIENT
  Age: 17814 Day
  Sex: Male
  Weight: 90.7 kg

DRUGS (19)
  1. SEROQUEL [Suspect]
     Indication: SLEEP DISORDER
     Route: 048
     Dates: start: 20030901, end: 20080101
  2. SEROQUEL [Suspect]
     Indication: SCHIZOPHRENIA
     Route: 048
     Dates: start: 20030901, end: 20080101
  3. SEROQUEL [Suspect]
     Route: 048
     Dates: start: 20030911
  4. SEROQUEL [Suspect]
     Route: 048
     Dates: start: 20030911
  5. ABILIFY [Concomitant]
     Indication: SCHIZOPHRENIA
     Dates: start: 19980101
  6. ABILIFY [Concomitant]
     Dates: start: 20030301
  7. ABILIFY [Concomitant]
     Dates: start: 20030328
  8. BENZITROPINE [Concomitant]
     Indication: SCHIZOPHRENIA
     Dates: start: 19980101
  9. BENZITROPINE [Concomitant]
     Dates: start: 20030101, end: 20040101
  10. RISPERDAL [Concomitant]
     Indication: SCHIZOPHRENIA
     Dates: start: 20030101
  11. RISPERDAL [Concomitant]
  12. RISPERDAL [Concomitant]
     Dosage: 1 TO 3 MG
     Dates: start: 20030201
  13. ZOLOFT [Concomitant]
     Indication: DEPRESSION
     Dates: start: 19990101
  14. ZOLOFT [Concomitant]
  15. CRESTOR [Concomitant]
     Indication: BLOOD TRIGLYCERIDES INCREASED
     Dates: start: 20020101
  16. GEMFIBROZIL [Concomitant]
     Indication: BLOOD TRIGLYCERIDES INCREASED
     Dates: start: 20020101
  17. PROTONIX [Concomitant]
     Dates: start: 20030430
  18. REMERON [Concomitant]
     Dates: start: 20030201
  19. NASACORT AQ [Concomitant]
     Dates: start: 20030201

REACTIONS (2)
  - DIABETES MELLITUS [None]
  - PANCREATITIS [None]
